FAERS Safety Report 8805810 (Version 1)
Quarter: 2012Q4

REPORT INFORMATION
  Report Type: Spontaneous
  Country: IT (occurrence: None)
  Receive Date: 20120918
  Receipt Date: 20120918
  Transmission Date: 20130627
  Serious: Yes (Life-Threatening)
  Sender: FDA-Public Use
  Company Number: FK201202641

PATIENT
  Age: 73 Year
  Sex: Male
  Weight: 57 kg

DRUGS (4)
  1. CEFTRIAXONE [Suspect]
     Indication: ANTIBIOTIC PROPHYLAXIS
     Route: 042
     Dates: start: 20120824, end: 20120824
  2. KETOROLAC [Suspect]
     Indication: ANALGESIC THERAPY
     Route: 042
     Dates: start: 20120824, end: 20120824
  3. PROPOFOL (PROPOFOL) [Concomitant]
  4. FENTANYL (FENTANYL) [Concomitant]

REACTIONS (1)
  - Anaphylactic shock [None]
